FAERS Safety Report 21470440 (Version 1)
Quarter: 2022Q4

REPORT INFORMATION
  Report Type: Spontaneous
  Country: US (occurrence: None)
  Receive Date: 20221017
  Receipt Date: 20221017
  Transmission Date: 20230113
  Serious: No
  Sender: FDA-Public Use
  Company Number: None

PATIENT
  Sex: Female

DRUGS (2)
  1. OPSUMIT [Suspect]
     Active Substance: MACITENTAN
     Indication: Pulmonary arterial hypertension
     Dosage: FREQUENCY : DAILY;?
     Route: 048
     Dates: start: 20220417
  2. ORENITRAM [Suspect]
     Active Substance: TREPROSTINIL

REACTIONS (5)
  - Fluid retention [None]
  - Nausea [None]
  - Retching [None]
  - Headache [None]
  - Constipation [None]
